FAERS Safety Report 19460476 (Version 2)
Quarter: 2022Q1

REPORT INFORMATION
  Report Type: Report from Study
  Country: FR (occurrence: FR)
  Receive Date: 20210626
  Receipt Date: 20220126
  Transmission Date: 20220423
  Serious: Yes (Hospitalization, Other)
  Sender: FDA-Public Use
  Company Number: FR-SHIRE-FR201847680

PATIENT
  Age: 47 Year
  Sex: Male

DRUGS (8)
  1. TEDUGLUTIDE [Suspect]
     Active Substance: TEDUGLUTIDE
     Indication: Short-bowel syndrome
     Dosage: 3.3 MILLIGRAM, (0.05MG/KG), QD
     Route: 065
     Dates: start: 20160324, end: 20181205
  2. TEDUGLUTIDE [Suspect]
     Active Substance: TEDUGLUTIDE
     Indication: Short-bowel syndrome
     Dosage: 3.3 MILLIGRAM, (0.05MG/KG), QD
     Route: 065
     Dates: start: 20160324, end: 20181205
  3. TEDUGLUTIDE [Suspect]
     Active Substance: TEDUGLUTIDE
     Indication: Short-bowel syndrome
     Dosage: 3.3 MILLIGRAM, (0.05MG/KG), QD
     Route: 065
     Dates: start: 20160324, end: 20181205
  4. TEDUGLUTIDE [Suspect]
     Active Substance: TEDUGLUTIDE
     Indication: Short-bowel syndrome
     Dosage: 3.3 MILLIGRAM, (0.05MG/KG), QD
     Route: 065
     Dates: start: 20160324, end: 20181205
  5. EUPANTOL [Concomitant]
     Active Substance: PANTOPRAZOLE SODIUM
     Indication: Abdominal pain
     Dosage: 40 MILLIGRAM, QD
     Route: 042
     Dates: start: 20190109
  6. TIAPRIDE HYDROCHLORIDE [Concomitant]
     Active Substance: TIAPRIDE HYDROCHLORIDE
     Indication: Anxiety
     Dosage: 100 MILLIGRAM, THROUGHOUT THE DAY
     Route: 042
     Dates: start: 20190109
  7. INNOHEP [Concomitant]
     Active Substance: TINZAPARIN SODIUM
     Indication: Thrombosis
     Dosage: 800 INTERNATIONAL UNIT, QD
     Route: 058
     Dates: start: 20190109
  8. URSODIOL [Concomitant]
     Active Substance: URSODIOL
     Indication: Liver disorder
     Dosage: 250 MILLIGRAM, QD
     Route: 048
     Dates: start: 20190109

REACTIONS (1)
  - Sepsis [Recovered/Resolved]

NARRATIVE: CASE EVENT DATE: 20181205
